FAERS Safety Report 6686155-7 (Version None)
Quarter: 2010Q2

REPORT INFORMATION
  Report Type: 
  Country: None (occurrence: None)
  Receive Date: 20100419
  Receipt Date: 20100407
  Transmission Date: 20101027
  Serious: Yes (Other)
  Sender: FDA-Public Use
  Company Number: PHHY2010BR21835

PATIENT
  Age: 88 Year
  Sex: Male
  Weight: 73 kg

DRUGS (2)
  1. DIOVAN HCT [Suspect]
     Indication: HYPERTENSION
     Dosage: 1 TABLET IN FASTING CONDITION
     Route: 048
     Dates: start: 20030101
  2. ASPIRIN [Concomitant]
     Indication: ANTICOAGULANT THERAPY
     Dosage: 100 MG, 1 TABLET DAILY IN FASTING

REACTIONS (4)
  - CARDIAC PACEMAKER INSERTION [None]
  - DECREASED APPETITE [None]
  - DIZZINESS POSTURAL [None]
  - FATIGUE [None]
